FAERS Safety Report 24604664 (Version 2)
Quarter: 2024Q4

REPORT INFORMATION
  Report Type: Spontaneous
  Country: JP (occurrence: JP)
  Receive Date: 20241111
  Receipt Date: 20241119
  Transmission Date: 20250114
  Serious: Yes (Other)
  Sender: TAIHO ONCOLOGY INC
  Company Number: JP-TAIHOP-2024-010588

PATIENT
  Age: 8 Decade
  Sex: Female

DRUGS (2)
  1. LONSURF [Suspect]
     Active Substance: TIPIRACIL HYDROCHLORIDE\TRIFLURIDINE
     Indication: Colorectal cancer
     Dosage: DOSE, FORM STRENGTH, AND FREQUENCY.?CYCLE 6
     Route: 048
  2. BEVACIZUMAB [Concomitant]
     Active Substance: BEVACIZUMAB
     Indication: Product used for unknown indication

REACTIONS (2)
  - Cardiac failure [Recovering/Resolving]
  - Bundle branch block left [Unknown]
